FAERS Safety Report 5904582-X (Version None)
Quarter: 2008Q4

REPORT INFORMATION
  Report Type: 
  Country: None (occurrence: None)
  Receive Date: 20081001
  Receipt Date: 20080917
  Transmission Date: 20090506
  Serious: Yes (Hospitalization)
  Sender: FDA-Public Use
  Company Number: FR-ELI_LILLY_AND_COMPANY-FR200807005065

PATIENT
  Age: 77 Year
  Sex: Female
  Weight: 53 kg

DRUGS (5)
  1. FORTEO [Suspect]
     Indication: OSTEOPOROSIS
     Dosage: 20 UG, DAILY (1/D)
     Route: 058
     Dates: start: 20070209, end: 20080601
  2. INSULIN [Concomitant]
     Indication: DIABETES MELLITUS
     Dosage: UNK, UNKNOWN
     Route: 065
  3. IDEOS [Concomitant]
     Indication: OSTEOPOROSIS
     Dosage: UNK, UNKNOWN
     Route: 065
  4. LEVOTHYROX [Concomitant]
     Indication: HYPERTHYROIDISM
     Dosage: UNK, UNKNOWN
     Route: 065
  5. CORTANCYL [Concomitant]
     Indication: THROMBOCYTOPENIA
     Dosage: UNK, UNKNOWN
     Route: 065

REACTIONS (1)
  - THROMBOCYTOPENIA [None]
